FAERS Safety Report 26088917 (Version 1)
Quarter: 2025Q4

REPORT INFORMATION
  Report Type: Spontaneous
  Country: EU (occurrence: EU)
  Receive Date: 20251125
  Receipt Date: 20251125
  Transmission Date: 20260118
  Serious: Yes (Life-Threatening, Disabling, Other)
  Sender: ELI LILLY AND COMPANY
  Company Number: None

PATIENT
  Age: 35 Year
  Sex: Male
  Weight: 56 kg

DRUGS (5)
  1. CYMBALTA [Suspect]
     Active Substance: DULOXETINE HYDROCHLORIDE
     Indication: Product used for unknown indication
     Dosage: 1 TABLET PER DAY
     Route: 048
     Dates: start: 20130315, end: 20130815
  2. ESCITALOPRAM [Suspect]
     Active Substance: ESCITALOPRAM OXALATE
     Indication: Major depression
     Dosage: 1 TABLET PER DAY
     Route: 048
     Dates: start: 20150715, end: 20150915
  3. ESCITALOPRAM [Suspect]
     Active Substance: ESCITALOPRAM OXALATE
     Indication: Anxiety
  4. SERTRALINE HYDROCHLORIDE [Suspect]
     Active Substance: SERTRALINE HYDROCHLORIDE
     Indication: Major depression
     Dosage: 1 TABLET PER DAY
     Route: 048
     Dates: start: 20210815, end: 20220415
  5. SERTRALINE HYDROCHLORIDE [Suspect]
     Active Substance: SERTRALINE HYDROCHLORIDE
     Dosage: RESTARTED WITH 50 MG DOSE
     Route: 048
     Dates: start: 202401

REACTIONS (13)
  - Sexual dysfunction [Recovering/Resolving]
  - Pain [Unknown]
  - Cognitive disorder [Unknown]
  - Balance disorder [Unknown]
  - Memory impairment [Unknown]
  - Depressed mood [Unknown]
  - Amnesia [Unknown]
  - Anhedonia [Unknown]
  - Sleep disorder [Unknown]
  - Fatigue [Unknown]
  - Apathy [Unknown]
  - Vision blurred [Unknown]
  - Disturbance in attention [Unknown]
